FAERS Safety Report 16259547 (Version 1)
Quarter: 2019Q2

REPORT INFORMATION
  Report Type: Spontaneous
  Country: US (occurrence: US)
  Receive Date: 20190327
  Receipt Date: 20190327
  Transmission Date: 20190711
  Serious: Yes (Other)
  Sender: FDA-Public Use
  Company Number: None

PATIENT
  Age: 68 Year
  Sex: Female

DRUGS (9)
  1. GLUCOPHAGE [Concomitant]
     Active Substance: METFORMIN HYDROCHLORIDE
  2. METHIMAZOLE. [Concomitant]
     Active Substance: METHIMAZOLE
  3. CAPTOPRIL. [Concomitant]
     Active Substance: CAPTOPRIL
  4. LATANAPROST EYE DROP [Concomitant]
  5. METFORMIN 500MG [Suspect]
     Active Substance: METFORMIN HYDROCHLORIDE
     Indication: TYPE 2 DIABETES MELLITUS
     Dosage: ?          QUANTITY:500 MG MILLIGRAM(S);?
     Route: 048
     Dates: start: 20190316, end: 20190319
  6. LUTEIN [Concomitant]
     Active Substance: LUTEIN
  7. ATENOLOL. [Concomitant]
     Active Substance: ATENOLOL
  8. DORZOLAMIDE/TIMOLOL MALEATE EYE DROP [Concomitant]
  9. OMEGA E [Concomitant]

REACTIONS (3)
  - Pruritus [None]
  - Product substitution issue [None]
  - Paraesthesia oral [None]

NARRATIVE: CASE EVENT DATE: 20190318
